FAERS Safety Report 4276634-4 (Version None)
Quarter: 2004Q1

REPORT INFORMATION
  Report Type: 
  Country: None (occurrence: None)
  Receive Date: 20040120
  Receipt Date: 20040108
  Transmission Date: 20041129
  Serious: Yes (Hospitalization)
  Sender: FDA-Public Use
  Company Number: 2004-01-0317

PATIENT
  Sex: Male

DRUGS (3)
  1. LOTRISONE [Suspect]
     Dosage: TOP-DERM
     Dates: start: 19960101
  2. SPORANOX [Concomitant]
  3. UNSPECIFIED THERAPEUTIC AGENT [Concomitant]

REACTIONS (3)
  - MYOCARDIAL INFARCTION [None]
  - NOSOCOMIAL INFECTION [None]
  - STAPHYLOCOCCAL INFECTION [None]
